FAERS Safety Report 16892562 (Version 1)
Quarter: 2019Q4

REPORT INFORMATION
  Report Type: Spontaneous
  Country: RU (occurrence: RU)
  Receive Date: 20191007
  Receipt Date: 20191007
  Transmission Date: 20200122
  Serious: Yes (Hospitalization, Other)
  Sender: FDA-Public Use
  Company Number: RU-BAYER-2019-179351

PATIENT
  Age: 38 Year
  Sex: Female

DRUGS (1)
  1. QLAIRA [Suspect]
     Active Substance: DIENOGEST\ESTRADIOL VALERATE
     Indication: CONTRACEPTION
     Dosage: 1 DF, QD
     Route: 048
     Dates: start: 2016, end: 20190926

REACTIONS (4)
  - Ovarian rupture [None]
  - Ovarian enlargement [None]
  - Abdominal pain lower [None]
  - Internal haemorrhage [None]

NARRATIVE: CASE EVENT DATE: 201909
